FAERS Safety Report 7653779-X (Version None)
Quarter: 2011Q3

REPORT INFORMATION
  Report Type: 
  Country: None (occurrence: None)
  Receive Date: 20110803
  Receipt Date: 20110728
  Transmission Date: 20111222
  Serious: Yes (Death)
  Sender: FDA-Public Use
  Company Number: FR-GLAXOSMITHKLINE-B0735505A

PATIENT
  Sex: Male

DRUGS (4)
  1. CLOBETASOL PROPIONATE [Suspect]
     Dosage: 1APP SEE DOSAGE TEXT
     Route: 061
     Dates: end: 20110712
  2. METHOTREXATE [Suspect]
     Dosage: 20MG WEEKLY
     Dates: start: 20110704, end: 20110711
  3. BICNU [Suspect]
     Dosage: 1INJ THREE TIMES PER WEEK
     Route: 042
     Dates: start: 20110704, end: 20110713
  4. DIPROSONE [Suspect]
     Dosage: 1APP PER DAY
     Route: 061
     Dates: end: 20110713

REACTIONS (2)
  - NECROTISING FASCIITIS [None]
  - LYMPHOPENIA [None]
